FAERS Safety Report 6943378-7 (Version None)
Quarter: 2010Q3

REPORT INFORMATION
  Report Type: 
  Country: None (occurrence: None)
  Receive Date: 20100826
  Receipt Date: 20100817
  Transmission Date: 20110219
  Serious: Yes (Death, Life-Threatening, Hospitalization)
  Sender: FDA-Public Use
  Company Number: GB-PFIZER INC-2010088994

PATIENT
  Age: 67 Year
  Sex: Male
  Weight: 127.2 kg

DRUGS (13)
  1. SOMATROPIN [Suspect]
     Indication: HYPOPITUITARISM
     Dosage: 0.3 MG, 1X/DAY
     Dates: start: 20080805
  2. LEVOTHYROXINE SODIUM [Concomitant]
     Indication: HYPOTHYROIDISM
     Dosage: 100 UG, 1X/DAY
     Dates: start: 20070801
  3. SUSTANON [Concomitant]
     Indication: BLOOD LUTEINISING HORMONE DECREASED
     Dosage: 1 ML, UNK
     Dates: start: 20010906
  4. SUSTANON [Concomitant]
     Indication: BLOOD FOLLICLE STIMULATING HORMONE DECREASED
  5. SUSTANON [Concomitant]
     Indication: HYPOGONADISM MALE
  6. HYDROCORTISONE [Concomitant]
     Indication: BLOOD CORTICOTROPHIN DECREASED
     Dosage: 30 MG, 1X/DAY
     Dates: start: 20010314
  7. HYDROCORTISONE [Concomitant]
     Dosage: 20 MG, 1X/DAY
     Dates: start: 20010906
  8. OMEPRAZOLE [Concomitant]
     Indication: GASTRIC ULCER
     Dosage: 10 MG, 1X/DAY
     Dates: start: 20010504
  9. OMEPRAZOLE [Concomitant]
     Indication: DUODENAL ULCER
  10. AMLODIPINE [Concomitant]
     Indication: HYPERTENSION
     Dosage: 10 MG, 1X/DAY
     Dates: start: 20010504
  11. AMLODIPINE [Concomitant]
     Indication: PROPHYLAXIS
  12. DESMOSPRAY [Concomitant]
     Indication: BLOOD ANTIDIURETIC HORMONE DECREASED
     Dosage: 10 UG, 1X/DAY
     Dates: start: 20010314
  13. BROMOCRIPTINE [Concomitant]
     Indication: PARKINSONISM
     Dosage: 2.5 MG, 1X/DAY
     Dates: start: 20010314

REACTIONS (2)
  - METASTASES TO LIVER [None]
  - SMALL INTESTINE CARCINOMA [None]
